FAERS Safety Report 7505115-7 (Version None)
Quarter: 2011Q2

REPORT INFORMATION
  Report Type: 
  Country: None (occurrence: None)
  Receive Date: 20110526
  Receipt Date: 20110518
  Transmission Date: 20111010
  Serious: No
  Sender: FDA-Public Use
  Company Number: US-BIOGENIDEC-2011BI019200

PATIENT
  Sex: Female

DRUGS (3)
  1. SHOTS (NOS) [Concomitant]
     Indication: DYSPNOEA
  2. TYSABRI [Suspect]
     Indication: PRODUCT USED FOR UNKNOWN INDICATION
     Dates: start: 20110214
  3. MEDICINE (NOS) [Concomitant]
     Indication: DYSPNOEA

REACTIONS (5)
  - MALAISE [None]
  - ADVERSE REACTION [None]
  - VERTIGO [None]
  - URTICARIA [None]
  - ANTIBODY TEST ABNORMAL [None]
